FAERS Safety Report 12291014 (Version 1)
Quarter: 2016Q2

REPORT INFORMATION
  Report Type: Not Available
  Country: None (occurrence: US)
  Receive Date: 20160421
  Receipt Date: 20160421
  Transmission Date: 20160815
  Serious: No
  Sender: FDA-Public Use
  Company Number: US-AKORN-28630

PATIENT
  Sex: Female

DRUGS (1)
  1. PROGESTERONE CAPSULES [Suspect]
     Active Substance: PROGESTERONE

REACTIONS (6)
  - Throat tightness [None]
  - Dyspnoea [None]
  - Vulvovaginal pruritus [None]
  - Nausea [None]
  - Vision blurred [None]
  - Headache [None]
